FAERS Safety Report 18238819 (Version 2)
Quarter: 2020Q3

REPORT INFORMATION
  Report Type: Report from Study
  Country: CO (occurrence: CO)
  Receive Date: 20200907
  Receipt Date: 20200925
  Transmission Date: 20201103
  Serious: Yes (Death, Hospitalization)
  Sender: FDA-Public Use
  Company Number: NVSC2020CO181000

PATIENT
  Age: 59 Year
  Sex: Female

DRUGS (1)
  1. KISQALI [Suspect]
     Active Substance: RIBOCICLIB
     Indication: BREAST CANCER METASTATIC
     Dosage: UNK
     Route: 048

REACTIONS (14)
  - Death [Fatal]
  - Decreased appetite [Unknown]
  - Obstruction [Unknown]
  - Swelling face [Unknown]
  - Arthralgia [Unknown]
  - Pain [Unknown]
  - Seizure [Unknown]
  - Metastases to spine [Unknown]
  - Dysuria [Unknown]
  - Urinary tract infection [Unknown]
  - Headache [Unknown]
  - Ill-defined disorder [Unknown]
  - Gait disturbance [Unknown]
  - Crying [Unknown]

NARRATIVE: CASE EVENT DATE: 20200912
